FAERS Safety Report 5003994-9 (Version None)
Quarter: 2006Q2

REPORT INFORMATION
  Report Type: 
  Country: None (occurrence: None)
  Receive Date: 20060517
  Receipt Date: 20060425
  Transmission Date: 20061013
  Serious: Yes (Life-Threatening, Hospitalization, Disabling)
  Sender: FDA-Public Use
  Company Number: CA-AVENTIS-200614420GDDC

PATIENT
  Age: 68 Year
  Sex: Female

DRUGS (7)
  1. KETEK [Suspect]
     Indication: RESPIRATORY TRACT INFECTION
     Route: 048
     Dates: start: 20060116, end: 20060122
  2. ENTROPHEN [Concomitant]
     Dosage: DOSE: UNK
     Route: 048
  3. NORVASC [Concomitant]
     Indication: HYPERTENSION
     Route: 058
  4. SERAX [Concomitant]
     Route: 048
  5. CALCITE D [Concomitant]
  6. NOVASEN [Concomitant]
     Route: 048
  7. ACCURETIC [Concomitant]
     Indication: HYPERTENSION
     Dosage: DOSE: 20/12.5
     Route: 048

REACTIONS (5)
  - BLOOD CREATININE INCREASED [None]
  - NAUSEA [None]
  - NEPHRITIS INTERSTITIAL [None]
  - RENAL FAILURE [None]
  - VOMITING [None]
